FAERS Safety Report 23097709 (Version 1)
Quarter: 2023Q4

REPORT INFORMATION
  Report Type: Spontaneous
  Country: US (occurrence: US)
  Receive Date: 20231023
  Receipt Date: 20231023
  Transmission Date: 20240110
  Serious: Yes (Other)
  Sender: FDA-Public Use
  Company Number: US-STRIDES ARCOLAB LIMITED-2023SP015720

PATIENT
  Age: 37 Year
  Sex: Female

DRUGS (23)
  1. OXYCODONE [Suspect]
     Active Substance: OXYCODONE
     Indication: Pelvic pain
     Dosage: UNK
     Route: 065
  2. OXYCODONE [Suspect]
     Active Substance: OXYCODONE
     Dosage: 6 DOSAGE FORM, DAILY (WEEK-1 AND 2, TABLET)
     Route: 065
  3. OXYCODONE [Suspect]
     Active Substance: OXYCODONE
     Dosage: 5.5 DOSAGE FORM, DAILY (FOR 4 DAYS OF WEEK 3, TABLET )
     Route: 065
  4. OXYCODONE [Suspect]
     Active Substance: OXYCODONE
     Dosage: 5 DOSAGE FORM, DAILY (FOR REMAINING 3 DAYS OF WEEK 3-TABLET)
     Route: 065
  5. OXYCODONE [Suspect]
     Active Substance: OXYCODONE
     Dosage: 4 DOSAGE FORM, DAILY (FOR 4 DAYS OF WEEK 4-TABLET)
     Route: 065
  6. OXYCODONE [Suspect]
     Active Substance: OXYCODONE
     Dosage: 3 DOSAGE FORM, DAILY (FOR REMAINING 3 DAYS OF WEEK 4-TABLET)
     Route: 065
  7. OXYCODONE [Suspect]
     Active Substance: OXYCODONE
     Dosage: 2.5 DOSAGE FORM DAILY (FOR 4 DAYS OF WEEK 5-TABLET)
     Route: 065
  8. OXYCODONE [Suspect]
     Active Substance: OXYCODONE
     Dosage: 2 DOSAGE FORM, DAILY (FOR REMAINING 3 DAYS OF WEEK 5-TABLET)
     Route: 065
  9. OXYCODONE [Suspect]
     Active Substance: OXYCODONE
     Dosage: 1 DOSAGE FORM, DAILY (FOR 4 DAYS OF WEEK 6 FOLLOWED BY ITS DISCONTINUATION-TABLET)
     Route: 065
  10. MORPHINE SULFATE [Suspect]
     Active Substance: MORPHINE SULFATE
     Indication: Pelvic pain
     Dosage: UNK
     Route: 065
  11. MORPHINE SULFATE [Suspect]
     Active Substance: MORPHINE SULFATE
     Dosage: 15 MILLIGRAM, BID (EXTENDED RELEASE- WEEK 1)
     Route: 048
  12. MORPHINE SULFATE [Suspect]
     Active Substance: MORPHINE SULFATE
     Dosage: 15 MILLIGRAM, AT BED TIME (PER DAY) (EXTENDED RELEASE- WEEK 2 AT NIGHT)
     Route: 048
  13. NAPROXEN [Suspect]
     Active Substance: NAPROXEN
     Indication: Pelvic pain
     Dosage: UNK
     Route: 065
  14. BACLOFEN [Suspect]
     Active Substance: BACLOFEN
     Indication: Pelvic pain
     Dosage: UNK
     Route: 065
  15. BUPRENORPHINE\NALOXONE [Suspect]
     Active Substance: BUPRENORPHINE\NALOXONE
     Indication: Pelvic pain
     Dosage: UNK, BID (2-0.5 MG- 1/4 MICROFILM (WEEK 1))
     Route: 060
  16. BUPRENORPHINE\NALOXONE [Suspect]
     Active Substance: BUPRENORPHINE\NALOXONE
     Dosage: UNK, TID (2-0.5 MG- 1/4 MICROFILM (WEEK 2))
     Route: 060
  17. BUPRENORPHINE [Suspect]
     Active Substance: BUPRENORPHINE
     Indication: Pelvic pain
     Dosage: 0.5 DOSAGE FORM, BID (WEEK 3)
     Route: 060
  18. BUPRENORPHINE [Suspect]
     Active Substance: BUPRENORPHINE
     Dosage: 1 DOSAGE FORM, BID (WITH NOON 1/2 TABLET FOR 4 DAYS OF WEEK 4)
     Route: 060
  19. BUPRENORPHINE [Suspect]
     Active Substance: BUPRENORPHINE
     Dosage: 1 DOSAGE FORM, TID (FOR REMAINING 3 DAYS OF WEEK 4)
     Route: 060
  20. BUPRENORPHINE [Suspect]
     Active Substance: BUPRENORPHINE
     Dosage: 1 DOSAGE FORM, TID (WEEK 5 AND WEEK 6 (WITH 1/2 TABLET DAILY AS NEEDED))
     Route: 060
  21. BUPRENORPHINE [Suspect]
     Active Substance: BUPRENORPHINE
     Dosage: 10 MILLIGRAM/DAY (DOSE WAS INCREASED TO 10 MG/DAY IN DIVIDED DOSES (AT 28 WEEKS OF GESTATION) AND CO
     Route: 060
  22. PREGABALIN [Suspect]
     Active Substance: PREGABALIN
     Indication: Pelvic pain
     Dosage: UNK
     Route: 065
  23. LISDEXAMFETAMINE [Suspect]
     Active Substance: LISDEXAMFETAMINE
     Indication: Pelvic pain
     Dosage: UNK
     Route: 065

REACTIONS (7)
  - Rebound effect [Recovered/Resolved]
  - Dysstasia [Recovered/Resolved]
  - Gait disturbance [Recovered/Resolved]
  - Back pain [Recovered/Resolved]
  - Arthralgia [Recovered/Resolved]
  - Maternal exposure during pregnancy [Unknown]
  - Off label use [Unknown]
